FAERS Safety Report 9738975 (Version 1)
Quarter: 2013Q4

REPORT INFORMATION
  Report Type: Spontaneous
  Country: US (occurrence: US)
  Receive Date: 20131209
  Receipt Date: 20131209
  Transmission Date: 20140711
  Serious: Yes (Other)
  Sender: FDA-Public Use
  Company Number: US-RB-060636-13

PATIENT
  Age: 64 Year
  Sex: Male

DRUGS (1)
  1. MUCINEX DM [Suspect]
     Indication: LOWER RESPIRATORY TRACT INFECTION
     Dosage: 1 TABLET ON 01-DEC-2013
     Route: 048
     Dates: start: 20131201

REACTIONS (4)
  - Extrasystoles [Recovered/Resolved]
  - Heart rate increased [Recovered/Resolved]
  - Headache [Recovered/Resolved]
  - Malaise [Recovered/Resolved]
